FAERS Safety Report 5232065-1 (Version None)
Quarter: 2007Q1

REPORT INFORMATION
  Report Type: 
  Country: None (occurrence: None)
  Receive Date: 20061201
  Receipt Date: 20060828
  Transmission Date: 20070707
  Serious: No
  Sender: FDA-Public Use
  Company Number: US200608006309

PATIENT
  Age: 79 Year
  Sex: Female

DRUGS (15)
  1. CYMBALTA [Suspect]
     Indication: DEPRESSION
     Dosage: 20 MG, DAILY (1/D)
     Dates: start: 20060811, end: 20060801
  2. HYDROCHLOROTHIAZIDE [Concomitant]
  3. PLAVIX [Concomitant]
  4. SINGULAIR [Concomitant]
  5. ZETIA [Concomitant]
  6. TOPROL-XL [Concomitant]
  7. NEXIUM [Concomitant]
  8. ARICEPT /JPN/ (DONEPEZIL HYDROCHLORIDE) [Concomitant]
  9. ASPIRIN [Concomitant]
  10. VITAMINS [Concomitant]
  11. CALCIUM (CALCIUM) [Concomitant]
  12. XALATAN [Concomitant]
  13. ALBUTEROL [Concomitant]
  14. FOLTX (CYANOCOBALAMIN, FOLIC ACID, PYRIDOXINE) [Concomitant]
  15. LIPITOR [Concomitant]

REACTIONS (4)
  - BLOOD PRESSURE ABNORMAL [None]
  - DIZZINESS [None]
  - MEDICATION ERROR [None]
  - NAUSEA [None]
